FAERS Safety Report 7830840-8 (Version None)
Quarter: 2011Q4

REPORT INFORMATION
  Report Type: 
  Country: None (occurrence: None)
  Receive Date: 20111021
  Receipt Date: 20111020
  Transmission Date: 20120403
  Serious: Yes (Other)
  Sender: FDA-Public Use
  Company Number: JP-PFIZER INC-2011245414

PATIENT
  Age: 64 Year
  Sex: Male
  Weight: 66 kg

DRUGS (10)
  1. TRIAZOLAM [Concomitant]
     Indication: INSOMNIA
     Dosage: 0.25 MG, 1X/DAY
     Route: 048
  2. THIWAN [Concomitant]
     Dosage: 10 MG, 1X/DAY
     Route: 048
  3. VARENICLINE TARTRATE [Suspect]
     Dosage: 0.5 MG, 2X/DAY
     Route: 048
     Dates: start: 20110624, end: 20110627
  4. NIFELANTERN CR [Concomitant]
     Indication: HYPERTENSION
     Dosage: 20 MG, 1X/DAY
     Route: 048
  5. UROLEAP [Concomitant]
     Dosage: 50 MG, 1X/DAY
     Route: 048
  6. VARENICLINE TARTRATE [Suspect]
     Dosage: 1 MG, 2X/DAY
     Route: 048
     Dates: start: 20110628
  7. IRRIBOW [Concomitant]
     Dosage: 5 UG, 1X/DAY
     Route: 048
  8. VARENICLINE TARTRATE [Suspect]
     Indication: SMOKING CESSATION THERAPY
     Dosage: 0.5 MG, 1X/DAY
     Route: 048
     Dates: start: 20110621, end: 20110623
  9. GASDOCK [Concomitant]
     Dosage: 10 MG, 1X/DAY
     Route: 048
  10. PRODEC [Concomitant]
     Dosage: 100 MG, 1X/DAY
     Route: 048

REACTIONS (3)
  - ROAD TRAFFIC ACCIDENT [None]
  - HEAT ILLNESS [None]
  - ALTERED STATE OF CONSCIOUSNESS [None]
